FAERS Safety Report 25827102 (Version 1)
Quarter: 2025Q3

REPORT INFORMATION
  Report Type: Spontaneous
  Country: CA (occurrence: CA)
  Receive Date: 20250920
  Receipt Date: 20250920
  Transmission Date: 20251020
  Serious: Yes (Other)
  Sender: CELLTRION
  Company Number: CA-CELLTRION INC.-2025CA024036

PATIENT

DRUGS (17)
  1. INFLIXIMAB [Suspect]
     Active Substance: INFLIXIMAB
     Indication: Colitis ulcerative
     Route: 042
     Dates: start: 20250716
  2. INFLIXIMAB [Suspect]
     Active Substance: INFLIXIMAB
     Route: 042
     Dates: start: 20250716
  3. INFLIXIMAB [Suspect]
     Active Substance: INFLIXIMAB
     Route: 042
     Dates: start: 20250716
  4. ZOPICLONE [Concomitant]
     Active Substance: ZOPICLONE
  5. ZOPICLONE [Concomitant]
     Active Substance: ZOPICLONE
  6. VITAMINS [Concomitant]
     Active Substance: VITAMINS
  7. ENTOCORT [Concomitant]
     Active Substance: BUDESONIDE
  8. CHOLECALCIFEROL [Concomitant]
     Active Substance: CHOLECALCIFEROL
  9. JAMP CALCIUM [Concomitant]
  10. JAMP K8 [Concomitant]
  11. TRAZODONE [Concomitant]
     Active Substance: TRAZODONE HYDROCHLORIDE
  12. PROPRANOLOL [Concomitant]
     Active Substance: PROPRANOLOL HYDROCHLORIDE
  13. XARELTO [Concomitant]
     Active Substance: RIVAROXABAN
  14. OMEPRAZOLE [Concomitant]
     Active Substance: OMEPRAZOLE
  15. AZATHIOPRINE [Concomitant]
     Active Substance: AZATHIOPRINE
  16. RIVAROXABAN [Concomitant]
     Active Substance: RIVAROXABAN
  17. EFFEXOR [Concomitant]
     Active Substance: VENLAFAXINE HYDROCHLORIDE

REACTIONS (5)
  - Contusion [Unknown]
  - Wound [Unknown]
  - Diarrhoea [Unknown]
  - Off label use [Unknown]
  - Inappropriate schedule of product administration [Unknown]

NARRATIVE: CASE EVENT DATE: 20250716
